FAERS Safety Report 4803013-0 (Version None)
Quarter: 2005Q4

REPORT INFORMATION
  Report Type: 
  Country: None (occurrence: None)
  Receive Date: 20051013
  Receipt Date: 20050925
  Transmission Date: 20060501
  Serious: Yes (Hospitalization)
  Sender: FDA-Public Use
  Company Number: GBS050918543

PATIENT
  Sex: Female

DRUGS (1)
  1. ZYPREXA [Suspect]

REACTIONS (7)
  - ACCIDENT [None]
  - BACTERIAL INFECTION [None]
  - FALL [None]
  - ILEUS [None]
  - PSYCHOTIC DISORDER [None]
  - SEPSIS [None]
  - SUICIDE ATTEMPT [None]
